FAERS Safety Report 5330031-9 (Version None)
Quarter: 2007Q2

REPORT INFORMATION
  Report Type: 
  Country: None (occurrence: None)
  Receive Date: 20070521
  Receipt Date: 20070516
  Transmission Date: 20071010
  Serious: Yes (Death)
  Sender: FDA-Public Use
  Company Number: JP-BRACCO-BRO-011588

PATIENT
  Age: 80 Year
  Sex: Male

DRUGS (2)
  1. IOPAMIRON [Suspect]
     Route: 042
  2. IOPAMIRON [Suspect]
     Indication: COMPUTERISED TOMOGRAM
     Route: 042

REACTIONS (4)
  - AORTIC ANEURYSM RUPTURE [None]
  - FEELING ABNORMAL [None]
  - INJECTION SITE EXTRAVASATION [None]
  - SHOCK [None]
